FAERS Safety Report 7081449-8 (Version None)
Quarter: 2010Q4

REPORT INFORMATION
  Report Type: 
  Country: None (occurrence: None)
  Receive Date: 20101102
  Receipt Date: 20101102
  Transmission Date: 20110411
  Serious: Yes (Hospitalization)
  Sender: FDA-Public Use
  Company Number: None

PATIENT
  Age: 85 Year
  Sex: Male
  Weight: 69 kg

DRUGS (2)
  1. WARFARIN SODIUM [Suspect]
     Indication: ATRIAL FIBRILLATION
     Dosage: 1.28 MG BID PO
     Route: 048
     Dates: start: 20100730, end: 20100908
  2. ASPIRIN [Suspect]
     Indication: CORONARY ARTERY DISEASE
     Dosage: 81 MG EVERY DAY PO
     Route: 048
     Dates: start: 20090121, end: 20100908

REACTIONS (2)
  - GASTROINTESTINAL HAEMORRHAGE [None]
  - MALLORY-WEISS SYNDROME [None]
